FAERS Safety Report 11003053 (Version 1)
Quarter: 2015Q2

REPORT INFORMATION
  Report Type: Spontaneous
  Country: JP (occurrence: None)
  Receive Date: 20150406
  Receipt Date: 20150406
  Transmission Date: 20150821
  Serious: Yes (Death)
  Sender: FDA-Public Use
  Company Number: JP-20150045

PATIENT
  Age: 8 Decade
  Sex: Male

DRUGS (1)
  1. LIPIODOL ULTRA FLUID [Suspect]
     Active Substance: ETHIODIZED OIL
     Indication: THERAPEUTIC EMBOLISATION
     Route: 013

REACTIONS (5)
  - Hepatic function abnormal [None]
  - Renal impairment [None]
  - Cholangitis [None]
  - Product use issue [None]
  - Concomitant disease progression [None]
